FAERS Safety Report 9811224 (Version 3)
Quarter: 2014Q1

REPORT INFORMATION
  Report Type: Spontaneous
  Country: JP (occurrence: JP)
  Receive Date: 20140110
  Receipt Date: 20140218
  Transmission Date: 20141002
  Serious: Yes (Other)
  Sender: FDA-Public Use
  Company Number: JP-SUCAMPO PHARMA AMERICAS, INC-SPI201300879

PATIENT
  Age: 85 Year
  Sex: Female

DRUGS (6)
  1. AMITIZA [Suspect]
     Indication: CONSTIPATION
     Dosage: 24 MCG, BID
     Route: 048
  2. JUN CHO TO [Suspect]
     Indication: CONSTIPATION
     Dosage: UNK
     Route: 048
  3. AMLODIPINE [Concomitant]
     Indication: HYPERTENSION
     Dosage: 2.5 MG, QD
     Route: 048
  4. IMIDAPRIL HYDROCHLORIDE [Concomitant]
     Indication: HYPERTENSION
     Dosage: 5 MG, QD
     Route: 048
  5. HORDAZOL [Concomitant]
     Indication: CARDIAC FAILURE
     Dosage: 50 MG, BID
     Route: 048
  6. UNKNOWN [Concomitant]
     Indication: CONSTIPATION
     Dosage: 12 MG, BID
     Route: 048

REACTIONS (2)
  - Hypokalaemia [Recovering/Resolving]
  - Cardiac failure [Recovering/Resolving]
